FAERS Safety Report 9206689 (Version 2)
Quarter: 2013Q4

REPORT INFORMATION
  Report Type: Spontaneous
  Country: US (occurrence: US)
  Receive Date: 20130403
  Receipt Date: 20131209
  Transmission Date: 20140711
  Serious: Yes (Other)
  Sender: FDA-Public Use
  Company Number: US-BAYER-2013-040681

PATIENT
  Age: 16 Year
  Sex: Female

DRUGS (5)
  1. YASMIN [Suspect]
     Dosage: UNK
     Dates: start: 2008, end: 2011
  2. LEVOTHYROXIN [Concomitant]
     Dosage: 125 MCG, UNK
     Route: 048
  3. METFORMIN ER [Concomitant]
     Dosage: 500 MCG, UNK
     Route: 048
     Dates: start: 20110228
  4. NYSTATIN [Concomitant]
     Dosage: 100000 UNIT, UNK
     Route: 061
     Dates: start: 20110228
  5. ZARAH [Suspect]

REACTIONS (2)
  - Cholecystectomy [None]
  - Biliary colic [None]
